FAERS Safety Report 4290086-X (Version None)
Quarter: 2004Q1

REPORT INFORMATION
  Report Type: 
  Country: None (occurrence: None)
  Receive Date: 20040210
  Receipt Date: 20040105
  Transmission Date: 20041129
  Serious: Yes (Other)
  Sender: FDA-Public Use
  Company Number: US-BRISTOL-MYERS SQUIBB COMPANY-12468583

PATIENT
  Age: 73 Year
  Sex: Female
  Weight: 59 kg

DRUGS (6)
  1. CARBOPLATIN [Suspect]
     Indication: OVARIAN CANCER
     Route: 042
     Dates: start: 20021122, end: 20021122
  2. TAXOL [Suspect]
     Indication: OVARIAN CANCER
     Dosage: DOSE REDUCED TO 127 MG
     Route: 042
     Dates: start: 20021122, end: 20021122
  3. COUMADIN [Concomitant]
     Dates: start: 20020701
  4. MULTIVITAMIN [Concomitant]
  5. THIAMINE HCL [Concomitant]
  6. MEGACE [Concomitant]
     Dates: start: 20020801

REACTIONS (4)
  - AMNESIA [None]
  - MENTAL IMPAIRMENT [None]
  - SPEECH DISORDER [None]
  - THINKING ABNORMAL [None]
